FAERS Safety Report 7550334-7 (Version None)
Quarter: 2011Q2

REPORT INFORMATION
  Report Type: 
  Country: None (occurrence: None)
  Receive Date: 20110615
  Receipt Date: 20110531
  Transmission Date: 20111010
  Serious: No
  Sender: FDA-Public Use
  Company Number: US-B.I. PHARMACEUTICALS,INC./RIDGEFIELD-2011-BP-05354BP

PATIENT
  Sex: Female
  Weight: 117.3 kg

DRUGS (10)
  1. PRADAXA [Suspect]
     Indication: ATRIAL FIBRILLATION
     Dosage: 300 MG
     Route: 048
     Dates: start: 20110131, end: 20110206
  2. LORTAB [Concomitant]
     Indication: BACK PAIN
  3. FENOFIBRATE [Concomitant]
     Indication: BLOOD CHOLESTEROL INCREASED
  4. FLECAINIDE ACETATE [Concomitant]
     Indication: ATRIAL FIBRILLATION
  5. LISINOPRIL [Concomitant]
     Indication: HYPERTENSION
  6. FLUTICASONE PROPIONATE [Concomitant]
     Indication: SINUS DISORDER
  7. SYNTHROID [Concomitant]
     Indication: THYROIDECTOMY
  8. METOPROLOL TARTRATE [Concomitant]
     Indication: HYPERTENSION
  9. PRILOSEC [Concomitant]
     Indication: DYSPEPSIA
  10. METFORMIN HCL [Concomitant]
     Indication: GLUCOSE TOLERANCE IMPAIRED

REACTIONS (7)
  - DYSPNOEA [None]
  - ABDOMINAL DISCOMFORT [None]
  - NASAL CONGESTION [None]
  - ABDOMINAL PAIN [None]
  - JOINT SWELLING [None]
  - COUGH [None]
  - CHEST PAIN [None]
